FAERS Safety Report 9934854 (Version 1)
Quarter: 2014Q1

REPORT INFORMATION
  Report Type: Spontaneous
  Country: US (occurrence: US)
  Receive Date: 20140228
  Receipt Date: 20140228
  Transmission Date: 20141002
  Serious: No
  Sender: FDA-Public Use
  Company Number: US-ASTRAZENECA-2013SE68637

PATIENT
  Age: 62 Year
  Sex: Female

DRUGS (5)
  1. VIMOVO [Suspect]
     Indication: PAIN
     Dosage: 500 MG, BID
     Route: 048
     Dates: start: 201306, end: 201309
  2. METOPROLOL SUCCINATE [Suspect]
     Indication: MYOCARDIAL INFARCTION
     Route: 048
     Dates: start: 2002
  3. LEXAPRO [Concomitant]
  4. LUNESTA [Concomitant]
  5. PREVACID [Concomitant]

REACTIONS (3)
  - Dysphonia [Recovered/Resolved]
  - Cough [Recovered/Resolved]
  - Pharyngeal oedema [Recovered/Resolved]
